FAERS Safety Report 7590307-1 (Version None)
Quarter: 2011Q3

REPORT INFORMATION
  Report Type: 
  Country: None (occurrence: None)
  Receive Date: 20110705
  Receipt Date: 20110629
  Transmission Date: 20111222
  Serious: Yes (Death, Hospitalization)
  Sender: FDA-Public Use
  Company Number: UA-PFIZER INC-2009242702

PATIENT
  Age: 74 Year
  Sex: Male
  Weight: 70 kg

DRUGS (14)
  1. MILDRONATE [Concomitant]
     Dosage: 5 ML, 1X/DAY
     Dates: start: 20090710, end: 20090717
  2. ASPARCAM [Concomitant]
     Dosage: 10 ML, 1X/DAY
     Dates: start: 20090710, end: 20090717
  3. CISPLATIN [Suspect]
     Indication: LUNG NEOPLASM MALIGNANT
     Dosage: 50 MG, 1X/DAY
     Dates: start: 20090711, end: 20090712
  4. QUADROPRIL [Concomitant]
     Indication: ESSENTIAL HYPERTENSION
     Dosage: 10 MG, 1X/DAY
     Dates: start: 20030101
  5. GLUCOSE [Concomitant]
     Dosage: 400 ML, 1X/DAY
     Dates: start: 20090716, end: 20090717
  6. NATRII CHLORIDUM [Concomitant]
     Dosage: 800 ML, 1X/DAY
     Dates: start: 20090710, end: 20090710
  7. CYCLOPHOSPHAMIDE [Suspect]
     Indication: LUNG NEOPLASM MALIGNANT
     Dosage: 600 MG, 1X/DAY
     Dates: start: 20090714, end: 20090715
  8. ONDANSETRON HYDROCHLORIDE [Concomitant]
     Indication: ANTIEMETIC SUPPORTIVE CARE
     Dosage: 8 MG, 1X/DAY
     Dates: start: 20090710, end: 20090717
  9. ERLOTINIB HYDROCHLORIDE [Suspect]
     Indication: NON-SMALL CELL LUNG CANCER
     Dosage: 150 MG, 1X/DAY
     Route: 048
     Dates: start: 20081208, end: 20090708
  10. DEXAMETHASONE [Concomitant]
     Indication: PREMEDICATION
     Dosage: 8 MG, 1X/DAY
     Dates: start: 20090710, end: 20090717
  11. NATRII CHLORIDUM [Concomitant]
     Dosage: 400 ML, 1X/DAY
     Dates: start: 20090713, end: 20090717
  12. METHOTREXATE SODIUM [Suspect]
     Indication: LUNG NEOPLASM MALIGNANT
     Dosage: 50 MG, 1X/DAY
     Dates: start: 20090713, end: 20090713
  13. DOXORUBICIN HCL [Suspect]
     Indication: LUNG NEOPLASM MALIGNANT
     Dosage: 50 MG, 1X/DAY
     Dates: start: 20090710, end: 20090710
  14. NATRII CHLORIDUM [Concomitant]
     Dosage: 1200 ML, 1X/DAY
     Dates: start: 20090711, end: 20090712

REACTIONS (8)
  - DIARRHOEA [None]
  - FATIGUE [None]
  - POOR PERIPHERAL CIRCULATION [None]
  - PNEUMONIA [None]
  - BLOOD BILIRUBIN INCREASED [None]
  - BLOOD FIBRINOGEN INCREASED [None]
  - HAEMOGLOBIN DECREASED [None]
  - MULTI-ORGAN FAILURE [None]
